FAERS Safety Report 8993175 (Version 2)
Quarter: 2013Q1

REPORT INFORMATION
  Report Type: Spontaneous
  Country: US (occurrence: US)
  Receive Date: 20130102
  Receipt Date: 20130122
  Transmission Date: 20140127
  Serious: Yes (Other)
  Sender: FDA-Public Use
  Company Number: US-ROCHE-1176192

PATIENT
  Age: 8 Year
  Sex: Male

DRUGS (7)
  1. GANCICLOVIR [Suspect]
     Indication: CYTOMEGALOVIRUS INFECTION
     Route: 042
  2. GANCICLOVIR [Suspect]
     Route: 042
  3. GANCICLOVIR [Suspect]
     Route: 042
  4. GANCICLOVIR [Suspect]
     Route: 042
  5. FOSCARNET [Concomitant]
     Route: 065
  6. GAMMA GLOBULIN [Concomitant]
     Route: 042
  7. CIDOFOVIR [Concomitant]
     Route: 065

REACTIONS (2)
  - Drug resistance [Unknown]
  - Neutropenia [Unknown]
